FAERS Safety Report 9570879 (Version 1)
Quarter: 2013Q3

REPORT INFORMATION
  Report Type: Spontaneous
  Country: US (occurrence: None)
  Receive Date: 20130927
  Receipt Date: 20130927
  Transmission Date: 20140515
  Serious: Yes (Death)
  Sender: FDA-Public Use
  Company Number: ACO_38565_2013

PATIENT
  Age: 61 Year
  Sex: Female

DRUGS (4)
  1. AMPYRA [Suspect]
     Indication: MULTIPLE SCLEROSIS
     Route: 048
     Dates: start: 201102, end: 201308
  2. NAMENDA ( MEMANTINE HYDROCHLORIDE) [Concomitant]
  3. OXYBUTYNIN CHLORIDE ( OXYBUTYNIN HYDROCHLORIDE) [Concomitant]
  4. FOLIC ACID ( FOLIC ACID) [Concomitant]

REACTIONS (1)
  - Death [None]
